FAERS Safety Report 14823935 (Version 1)
Quarter: 2018Q2

REPORT INFORMATION
  Report Type: Spontaneous
  Country: JP (occurrence: JP)
  Receive Date: 20180428
  Receipt Date: 20180428
  Transmission Date: 20180711
  Serious: Yes (Other)
  Sender: FDA-Public Use
  Company Number: JP-ROCHE-2114990

PATIENT
  Age: 5 Year
  Sex: Male
  Weight: 19 kg

DRUGS (3)
  1. MUCODYNE [Concomitant]
     Active Substance: CARBOCYSTEINE
     Dosage: DOSAGE IS UNCERTAIN.
     Route: 048
  2. RELENZA [Concomitant]
     Active Substance: ZANAMIVIR
  3. TAMIFLU [Suspect]
     Active Substance: OSELTAMIVIR PHOSPHATE
     Indication: INFLUENZA
     Route: 048
     Dates: start: 20180416, end: 20180416

REACTIONS (2)
  - Drug prescribing error [Unknown]
  - Abnormal behaviour [Recovered/Resolved]

NARRATIVE: CASE EVENT DATE: 20180416
